FAERS Safety Report 9548863 (Version 1)
Quarter: 2013Q3

REPORT INFORMATION
  Report Type: Spontaneous
  Country: NO (occurrence: NO)
  Receive Date: 20130924
  Receipt Date: 20130924
  Transmission Date: 20140515
  Serious: Yes (Hospitalization)
  Sender: FDA-Public Use
  Company Number: NO-PFIZER INC-2013272790

PATIENT
  Age: 62 Year
  Sex: Female

DRUGS (10)
  1. CORDARONE [Suspect]
     Dosage: UNK
     Route: 048
     Dates: end: 201304
  2. PRADAXA [Suspect]
     Dosage: UNK
     Route: 048
  3. IMOVANE [Concomitant]
     Dosage: UNK
  4. LIPITOR [Concomitant]
     Dosage: UNK
  5. CETIRIZINE [Concomitant]
     Dosage: UNK
  6. SELO-ZOK [Concomitant]
     Dosage: UNK
  7. PARACET [Concomitant]
     Dosage: UNK
  8. VAGIFEM [Concomitant]
     Dosage: UNK
  9. ENALAPRIL [Concomitant]
     Dosage: UNK
  10. SOFRADEX [Concomitant]
     Dosage: UNK

REACTIONS (3)
  - Interstitial lung disease [Not Recovered/Not Resolved]
  - Salivary gland adenoma [Unknown]
  - Rash [Unknown]
